FAERS Safety Report 5541681-9 (Version None)
Quarter: 2007Q4

REPORT INFORMATION
  Report Type: 
  Country: None (occurrence: None)
  Receive Date: 20071210
  Receipt Date: 20071129
  Transmission Date: 20080405
  Serious: Yes (Disabling, Other)
  Sender: FDA-Public Use
  Company Number: FR-JNJFOC-20071201022

PATIENT
  Age: 30 Year
  Sex: Female

DRUGS (2)
  1. REMICADE [Suspect]
     Route: 042
  2. REMICADE [Suspect]
     Indication: CROHN'S DISEASE
     Dosage: TOTAL OF 9 INFUSIONS OVER 14 MONTHS
     Route: 042

REACTIONS (4)
  - ALOPECIA [None]
  - ASTHENIA [None]
  - PSORIASIS [None]
  - WEIGHT INCREASED [None]
